FAERS Safety Report 7985478-9 (Version None)
Quarter: 2011Q4

REPORT INFORMATION
  Report Type: 
  Country: None (occurrence: None)
  Receive Date: 20111216
  Receipt Date: 20110304
  Transmission Date: 20120403
  Serious: No
  Sender: FDA-Public Use
  Company Number: US-ABBOTT-11P-163-0709967-00

PATIENT
  Age: 60 Year
  Sex: Male
  Weight: 83.7 kg

DRUGS (3)
  1. FENTANYL [Concomitant]
     Indication: PRODUCT USED FOR UNKNOWN INDICATION
  2. TAMIFLU [Concomitant]
     Indication: PRODUCT USED FOR UNKNOWN INDICATION
     Dates: start: 20110304
  3. NIMBEX [Suspect]
     Indication: ENDOTRACHEAL INTUBATION
     Dates: start: 20110301, end: 20110304

REACTIONS (1)
  - DRUG INEFFECTIVE [None]
